FAERS Safety Report 11059639 (Version 2)
Quarter: 2015Q2

REPORT INFORMATION
  Report Type: Spontaneous
  Country: DE (occurrence: DE)
  Receive Date: 20150423
  Receipt Date: 20150623
  Transmission Date: 20150821
  Serious: Yes (Other)
  Sender: FDA-Public Use
  Company Number: DE-ASTELLAS-2015EU005728

PATIENT
  Sex: Male
  Weight: 100 kg

DRUGS (3)
  1. XTANDI [Suspect]
     Active Substance: ENZALUTAMIDE
     Route: 048
     Dates: start: 20150306, end: 20150320
  2. HYDROMORPHON [Concomitant]
     Active Substance: HYDROMORPHONE
     Indication: PROSTATE CANCER
     Dosage: UNK, TWICE DAILY
     Route: 048
     Dates: start: 201204
  3. XTANDI [Suspect]
     Active Substance: ENZALUTAMIDE
     Indication: PROSTATE CANCER
     Route: 048
     Dates: start: 20150128, end: 201502

REACTIONS (6)
  - Thinking abnormal [Recovering/Resolving]
  - Listless [Recovering/Resolving]
  - Fatigue [Recovering/Resolving]
  - Nausea [Recovering/Resolving]
  - Decreased appetite [Recovering/Resolving]
  - Influenza like illness [Recovering/Resolving]

NARRATIVE: CASE EVENT DATE: 20150210
